FAERS Safety Report 15480584 (Version 3)
Quarter: 2022Q4

REPORT INFORMATION
  Report Type: Report from Study
  Country: US (occurrence: US)
  Receive Date: 20181010
  Receipt Date: 20221116
  Transmission Date: 20230113
  Serious: Yes (Death, Hospitalization, Other)
  Sender: FDA-Public Use
  Company Number: US-BRISTOL-MYERS SQUIBB COMPANY-BMS-2018-083934

PATIENT
  Age: 76 Year
  Sex: Male
  Weight: 78.5 kg

DRUGS (2)
  1. NIVOLUMAB [Suspect]
     Active Substance: NIVOLUMAB
     Indication: Acute myeloid leukaemia
     Dosage: 237 MG, UNK
     Route: 065
     Dates: start: 20180806, end: 20180806
  2. AZACITIDINE [Suspect]
     Active Substance: AZACITIDINE
     Indication: Acute myeloid leukaemia
     Dosage: 75 MG/M2, UNK
     Route: 065
     Dates: start: 20180806, end: 20180814

REACTIONS (10)
  - Respiratory failure [Fatal]
  - Sepsis [Unknown]
  - Febrile neutropenia [Unknown]
  - Supraventricular tachycardia [Unknown]
  - Acidosis [Unknown]
  - Acute kidney injury [Recovering/Resolving]
  - Hypotension [Unknown]
  - Pneumonia [Unknown]
  - Anaemia [Unknown]
  - Lower gastrointestinal haemorrhage [Unknown]

NARRATIVE: CASE EVENT DATE: 20180806
